FAERS Safety Report 12105473 (Version 1)
Quarter: 2016Q1

REPORT INFORMATION
  Report Type: Spontaneous
  Country: US (occurrence: None)
  Receive Date: 20160222
  Receipt Date: 20160222
  Transmission Date: 20160526
  Serious: Yes (Other)
  Sender: FDA-Public Use
  Company Number: None

PATIENT
  Age: 68 Year
  Sex: Male
  Weight: 56.7 kg

DRUGS (8)
  1. ATIVAN [Concomitant]
     Active Substance: LORAZEPAM
  2. AZILECT [Suspect]
     Active Substance: RASAGILINE MESYLATE
     Indication: DEPRESSION
     Dosage: ONE PILL ONCFE DAILY IN MORNING BY MOUTH MEDS 1ST DOSE
     Route: 048
     Dates: start: 20150106
  3. AZILECT [Suspect]
     Active Substance: RASAGILINE MESYLATE
     Indication: PARKINSON^S DISEASE
     Dosage: ONE PILL ONCFE DAILY IN MORNING BY MOUTH MEDS 1ST DOSE
     Route: 048
     Dates: start: 20150106
  4. LISINOPRIL. [Concomitant]
     Active Substance: LISINOPRIL
  5. ALEVE [Concomitant]
     Active Substance: NAPROXEN SODIUM
  6. VIT SUPP. D3 [Concomitant]
  7. CARDOPA/LEVADOPA [Concomitant]
  8. VITAMIN D3 [Concomitant]
     Active Substance: CHOLECALCIFEROL

REACTIONS (3)
  - Anxiety [None]
  - Agoraphobia [None]
  - Tremor [None]

NARRATIVE: CASE EVENT DATE: 20150806
